FAERS Safety Report 8237187-9 (Version None)
Quarter: 2012Q1

REPORT INFORMATION
  Report Type: 
  Country: None (occurrence: None)
  Receive Date: 20120327
  Receipt Date: 20120319
  Transmission Date: 20120608
  Serious: Yes (Other)
  Sender: FDA-Public Use
  Company Number: US-BAYER-2012-014071

PATIENT
  Sex: Female
  Weight: 53.061 kg

DRUGS (1)
  1. MIRENA [Suspect]
     Dosage: 20 MCG/24HR, CONT
     Route: 015
     Dates: start: 20110502, end: 20120110

REACTIONS (3)
  - DEVICE DISLOCATION [None]
  - ABDOMINAL PAIN [None]
  - COMPLICATION OF DEVICE REMOVAL [None]
